FAERS Safety Report 21742263 (Version 1)
Quarter: 2022Q4

REPORT INFORMATION
  Report Type: Spontaneous
  Country: US (occurrence: None)
  Receive Date: 20221216
  Receipt Date: 20221216
  Transmission Date: 20230113
  Serious: Yes (Hospitalization)
  Sender: FDA-Public Use
  Company Number: None

PATIENT
  Age: 39 Year
  Sex: Male
  Weight: 135 kg

DRUGS (4)
  1. METHOTREXATE [Suspect]
     Active Substance: METHOTREXATE
     Dates: end: 20220801
  2. ONCASPAR [Suspect]
     Active Substance: PEGASPARGASE
     Dates: end: 20220722
  3. RITUXIMAB [Suspect]
     Active Substance: RITUXIMAB
     Dates: end: 20220722
  4. VINCRISTINE SULFATE [Suspect]
     Active Substance: VINCRISTINE SULFATE
     Dates: end: 20220722

REACTIONS (3)
  - Acute kidney injury [None]
  - Left ventricular dysfunction [None]
  - Shock [None]

NARRATIVE: CASE EVENT DATE: 20220818
